FAERS Safety Report 8959777 (Version 2)
Quarter: 2012Q4

REPORT INFORMATION
  Report Type: 
  Country: IT (occurrence: IT)
  Receive Date: 20121212
  Receipt Date: 20121218
  Transmission Date: 20130627
  Serious: No
  Sender: FDA-Public Use
  Company Number: IT-AMGEN-ITASP2012069996

PATIENT
  Age: 73 Year
  Sex: Male

DRUGS (8)
  1. ENBREL [Suspect]
     Indication: ANKYLOSING SPONDYLITIS
     Dosage: 50 mg, weekly
     Route: 058
     Dates: start: 20080618, end: 20121001
  2. ATORVASTATIN [Concomitant]
     Dosage: UNK
  3. TRIATEC                            /00885601/ [Concomitant]
     Dosage: UNK
  4. DUOPLAVIN [Concomitant]
     Dosage: UNK
  5. PANTOPAN [Concomitant]
     Dosage: UNK
  6. MINITRAN                           /00003201/ [Concomitant]
     Dosage: UNK
  7. DILATREND [Concomitant]
     Dosage: UNK
  8. ATORVASTATIN ACTAVIS [Concomitant]
     Dosage: UNK

REACTIONS (1)
  - Aphthous stomatitis [Recovering/Resolving]
